FAERS Safety Report 7429698-0 (Version None)
Quarter: 2011Q2

REPORT INFORMATION
  Report Type: 
  Country: None (occurrence: None)
  Receive Date: 20110421
  Receipt Date: 20110414
  Transmission Date: 20111010
  Serious: Yes (Hospitalization, Other)
  Sender: FDA-Public Use
  Company Number: US-US-EMD SERONO, INC.-7001666

PATIENT
  Sex: Female

DRUGS (4)
  1. TRILEPTAL [Concomitant]
     Dates: start: 20100101
  2. TRILEPTAL [Concomitant]
     Indication: CONVULSION
     Dates: end: 20100101
  3. REBIF [Suspect]
     Indication: MULTIPLE SCLEROSIS
     Route: 058
     Dates: start: 20090828
  4. KEPPRA [Concomitant]
     Indication: CLONUS

REACTIONS (2)
  - CONVULSION [None]
  - DIVERTICULITIS [None]
